FAERS Safety Report 4667875-2 (Version None)
Quarter: 2005Q2

REPORT INFORMATION
  Report Type: 
  Country: None (occurrence: None)
  Receive Date: 20050520
  Receipt Date: 20050427
  Transmission Date: 20051028
  Serious: Yes (Other)
  Sender: FDA-Public Use
  Company Number: AU-ROCHE-403046

PATIENT
  Age: 45 Year
  Sex: Female

DRUGS (2)
  1. XENICAL [Suspect]
     Indication: DRUG USE FOR UNKNOWN INDICATION
     Route: 048
     Dates: start: 20050405
  2. BRUFEN [Concomitant]

REACTIONS (3)
  - CONSTIPATION [None]
  - LIPIDURIA [None]
  - ORAL INTAKE REDUCED [None]
